FAERS Safety Report 8840073 (Version 2)
Quarter: 2013Q1

REPORT INFORMATION
  Report Type: Spontaneous
  Country: US (occurrence: None)
  Receive Date: 20121011
  Receipt Date: 20121217
  Transmission Date: 20140127
  Serious: Yes (Other)
  Sender: FDA-Public Use
  Company Number: 201210018

PATIENT
  Age: 59 Year
  Sex: Male
  Weight: 78.93 kg

DRUGS (14)
  1. XIAFLEX [Suspect]
     Indication: DUPUYTREN^S CONTRACTURE
     Dosage: 1 IN 1 D, INTRALESIONAL
     Dates: start: 20120919, end: 20120919
  2. CHLOTHALIDONE (CHLORTALIDONE) [Concomitant]
  3. GABAPENTIN (GABAPENTIN) [Concomitant]
  4. FISH OIL (FISH OIL) [Concomitant]
  5. ATENOLOL (ATENOLOL) [Concomitant]
  6. AMLODIPINE BESYLATE [Concomitant]
  7. VITAMIN D [Concomitant]
  8. CRESTOR [Concomitant]
  9. DOCUSATE SODIUM [Concomitant]
  10. OMEPRAZOLE [Concomitant]
  11. OXYCODONE ACETAMINOPHEN [Concomitant]
  12. NITROSTAT [Concomitant]
  13. PRAMIPEXOLE DIHYDROCHLORIDE [Concomitant]
  14. ANESTHETICS, LOCAL [Concomitant]

REACTIONS (1)
  - Hand fracture [None]
